FAERS Safety Report 24189422 (Version 1)
Quarter: 2024Q3

REPORT INFORMATION
  Report Type: Spontaneous
  Country: US (occurrence: US)
  Receive Date: 20240808
  Receipt Date: 20240808
  Transmission Date: 20241016
  Serious: No
  Sender: SHENZHEN TECHDOW PHARMACEUTICAL
  Company Number: US-Techdow-2023Techdow000226

PATIENT
  Weight: 68 kg

DRUGS (2)
  1. HEPARIN SODIUM [Suspect]
     Active Substance: HEPARIN SODIUM
     Indication: Anticoagulant therapy
     Dosage: 8000UNIT,SINGLE DOSE AT 08:05
     Dates: start: 202311, end: 202311
  2. HEPARIN SODIUM [Suspect]
     Active Substance: HEPARIN SODIUM
     Indication: Anticoagulant therapy
     Dosage: 3000UNIT,SINGLE DOSE AT 08:18
     Dates: start: 202311, end: 202311

REACTIONS (1)
  - Therapeutic response decreased [Unknown]
